FAERS Safety Report 18492293 (Version 3)
Quarter: 2021Q1

REPORT INFORMATION
  Report Type: Spontaneous
  Country: CN (occurrence: CN)
  Receive Date: 20201111
  Receipt Date: 20210108
  Transmission Date: 20210419
  Serious: Yes (Death, Hospitalization)
  Sender: FDA-Public Use
  Company Number: CN-ELI_LILLY_AND_COMPANY-CN202010003754

PATIENT
  Age: 85 Year
  Sex: Female

DRUGS (1)
  1. TALTZ [Suspect]
     Active Substance: IXEKIZUMAB
     Indication: PSORIASIS
     Dosage: UNK, UNKNOWN
     Route: 058
     Dates: start: 20200828

REACTIONS (12)
  - Mental impairment [Unknown]
  - Pneumonia [Fatal]
  - Peripheral swelling [Recovering/Resolving]
  - Fatigue [Unknown]
  - Swelling face [Recovering/Resolving]
  - Mental impairment [Unknown]
  - Gait inability [Unknown]
  - Blood glucose increased [Unknown]
  - Hyperkalaemia [Unknown]
  - Decreased appetite [Unknown]
  - Decreased appetite [Unknown]
  - Renal impairment [Unknown]

NARRATIVE: CASE EVENT DATE: 20200929
